FAERS Safety Report 4531060-5 (Version None)
Quarter: 2004Q4

REPORT INFORMATION
  Report Type: 
  Country: None (occurrence: None)
  Receive Date: 20041215
  Receipt Date: 20041129
  Transmission Date: 20050328
  Serious: Yes (Hospitalization)
  Sender: FDA-Public Use
  Company Number: 2004231940FR

PATIENT
  Age: 68 Year
  Sex: Male

DRUGS (7)
  1. ALDACTAZINE (SPIRONOLACTONE, ALTIZIDE) [Suspect]
     Indication: ILL-DEFINED DISORDER
     Dosage: 1 TBSP (1 TBSP, DAILY), ORAL
     Route: 048
     Dates: start: 20030601
  2. REPAGLINIDE (REPAGLINIDE) [Suspect]
     Indication: ILL-DEFINED DISORDER
     Dosage: 8 MG (DAILY), ORAL
     Route: 048
     Dates: start: 20030601
  3. VASOBRAL (CAFFEINE, DIHYDROERGOCRYPTINE MESILATE) [Suspect]
     Indication: ILL-DEFINED DISORDER
     Dosage: 2 DOE FORMS (DAILY), ORAL
     Route: 048
     Dates: end: 20040715
  4. PIOGLITZONE (PIOGLITAZONE0 [Concomitant]
  5. SERETIDE MITE  (FLUTICASONE PROPIONATE, SALMETEROL XINAFOATE) [Concomitant]
  6. FENOFIBRATE [Concomitant]
  7. LATANOPROST [Concomitant]

REACTIONS (3)
  - LEUKOCYTOCLASTIC VASCULITIS [None]
  - PURPURA [None]
  - SKIN NECROSIS [None]
